FAERS Safety Report 12060922 (Version 2)
Quarter: 2016Q1

REPORT INFORMATION
  Report Type: Spontaneous
  Country: US (occurrence: US)
  Receive Date: 20160210
  Receipt Date: 20160302
  Transmission Date: 20160526
  Serious: Yes (Other)
  Sender: FDA-Public Use
  Company Number: US-PFIZER INC-2016078646

PATIENT
  Age: 67 Year
  Sex: Female
  Weight: 81 kg

DRUGS (5)
  1. XALATAN [Suspect]
     Active Substance: LATANOPROST
     Indication: OCULAR HYPERTENSION
     Dosage: ONE DROP IN EACH EYE, AT NIGHT
     Route: 047
     Dates: start: 2005
  2. XALATAN [Suspect]
     Active Substance: LATANOPROST
     Indication: GLAUCOMA
  3. AZOPT [Concomitant]
     Active Substance: BRINZOLAMIDE
     Indication: GLAUCOMA
     Dosage: ONE DROP TWICE A DAY
  4. ALPHAGAN P [Concomitant]
     Active Substance: BRIMONIDINE TARTRATE
     Indication: EYE INFECTION
     Dosage: 3 TIMES A DAY; MORNING, NOON AND AT NIGHT
  5. LANTUS SOLOSTAR INSULIN [Concomitant]
     Indication: DIABETES MELLITUS
     Dosage: 30 MG EVERY MORNING

REACTIONS (4)
  - Dysphonia [Not Recovered/Not Resolved]
  - Pneumonia [Unknown]
  - Coma [Recovered/Resolved]
  - Aortic valve disease [Recovering/Resolving]
